FAERS Safety Report 8985746 (Version 1)
Quarter: 2012Q4

REPORT INFORMATION
  Report Type: 
  Country: CA (occurrence: CA)
  Receive Date: 20121226
  Receipt Date: 20121226
  Transmission Date: 20130627
  Serious: Yes (Other)
  Sender: FDA-Public Use
  Company Number: CA-ELI_LILLY_AND_COMPANY-CA201212005217

PATIENT
  Age: 74 Year
  Sex: Female

DRUGS (23)
  1. FORTEO [Suspect]
     Indication: OSTEOPOROSIS
     Dosage: 20 ug, UNK
     Route: 058
     Dates: start: 20110803, end: 20121214
  2. FOSAMAX [Concomitant]
     Dosage: UNK
  3. VITAMIN D [Concomitant]
     Dosage: UNK
  4. VENTOLIN                                /SCH/ [Concomitant]
     Dosage: UNK
  5. SPIRIVA [Concomitant]
     Dosage: UNK
  6. SEREVENT [Concomitant]
     Dosage: UNK
  7. FLOVENT [Concomitant]
     Dosage: UNK
  8. ARANESP [Concomitant]
     Dosage: UNK
  9. CALCITONIN [Concomitant]
     Dosage: UNK
  10. HYDROMORPHONE [Concomitant]
     Dosage: UNK
  11. NITROGLYCERIN [Concomitant]
     Dosage: UNK
  12. SIMVASTATIN [Concomitant]
     Dosage: UNK
  13. LACTULOSE [Concomitant]
     Dosage: UNK
  14. DIAZEPAM [Concomitant]
     Dosage: UNK
  15. SENNOSIDE [Concomitant]
     Dosage: UNK
  16. IRON [Concomitant]
     Dosage: UNK
  17. ASA [Concomitant]
     Dosage: UNK
  18. LYRICA [Concomitant]
     Dosage: UNK
  19. PANTOLOC                           /01263204/ [Concomitant]
     Dosage: UNK
  20. SYNTHROID [Concomitant]
     Dosage: UNK
  21. DOCUSATE [Concomitant]
     Dosage: UNK
  22. CALCIUM [Concomitant]
     Dosage: UNK
  23. NOVO-GESIC [Concomitant]
     Dosage: UNK

REACTIONS (1)
  - Nephritis [Not Recovered/Not Resolved]
